FAERS Safety Report 5162961-5 (Version None)
Quarter: 2006Q4

REPORT INFORMATION
  Report Type: 
  Country: None (occurrence: None)
  Receive Date: 20061201
  Receipt Date: 20061121
  Transmission Date: 20070319
  Serious: Yes (Hospitalization)
  Sender: FDA-Public Use
  Company Number: US-AMGEN-US201166

PATIENT
  Sex: Female

DRUGS (2)
  1. ENBREL [Suspect]
     Indication: RHEUMATOID ARTHRITIS
     Route: 058
     Dates: start: 20021001
  2. METHOTREXATE [Concomitant]
     Route: 048
     Dates: start: 20060301

REACTIONS (3)
  - HIP ARTHROPLASTY [None]
  - INJECTION SITE IRRITATION [None]
  - INJECTION SITE PRURITUS [None]
